FAERS Safety Report 24411640 (Version 3)
Quarter: 2024Q4

REPORT INFORMATION
  Report Type: Spontaneous
  Country: US (occurrence: US)
  Receive Date: 20241008
  Receipt Date: 20241011
  Transmission Date: 20250115
  Serious: Yes (Death, Life-Threatening, Hospitalization, Other)
  Sender: GILEAD
  Company Number: US-GILEAD-2024-0690274

PATIENT
  Age: 81 Year
  Sex: Male
  Weight: 93.7 kg

DRUGS (2)
  1. YESCARTA [Suspect]
     Active Substance: AXICABTAGENE CILOLEUCEL
     Indication: Diffuse large B-cell lymphoma
     Dosage: 68 ML, ONCE
     Route: 042
     Dates: start: 20240904, end: 20240904
  2. AMIODARONE HYDROCHLORIDE [Suspect]
     Active Substance: AMIODARONE HYDROCHLORIDE
     Indication: Product used for unknown indication
     Route: 065

REACTIONS (16)
  - Acute respiratory failure [Fatal]
  - Pulseless electrical activity [Fatal]
  - Disseminated intravascular coagulation [Unknown]
  - Atrial fibrillation [Unknown]
  - Immune effector cell-associated neurotoxicity syndrome [Not Recovered/Not Resolved]
  - Liver function test increased [Unknown]
  - Ischaemia [Not Recovered/Not Resolved]
  - Transient ischaemic attack [Recovered/Resolved]
  - Hypocalcaemia [Unknown]
  - Hyponatraemia [Unknown]
  - Blood fibrinogen decreased [Unknown]
  - International normalised ratio increased [Unknown]
  - Hypertension [Unknown]
  - Pulmonary oedema [Not Recovered/Not Resolved]
  - Infection [Not Recovered/Not Resolved]
  - Cytokine release syndrome [Recovered/Resolved]

NARRATIVE: CASE EVENT DATE: 20240901
